FAERS Safety Report 7252077-6 (Version None)
Quarter: 2011Q1

REPORT INFORMATION
  Report Type: 
  Country: None (occurrence: None)
  Receive Date: 20110128
  Receipt Date: 20100429
  Transmission Date: 20110831
  Serious: No
  Sender: FDA-Public Use
  Company Number: US-ABBOTT-10P-163-0641693-00

PATIENT
  Sex: Female
  Weight: 61.29 kg

DRUGS (6)
  1. HUMIRA [Suspect]
     Indication: CROHN'S DISEASE
     Dates: start: 20070901
  2. MULTIVITAMIN [Concomitant]
     Indication: VITAMIN SUPPLEMENTATION
  3. IMURAN [Concomitant]
     Indication: CROHN'S DISEASE
  4. CITRICAL [Concomitant]
     Indication: CROHN'S DISEASE
  5. FOSAMAX [Concomitant]
     Indication: OSTEOPOROSIS
  6. PENTAZA [Concomitant]
     Indication: CROHN'S DISEASE

REACTIONS (3)
  - PYREXIA [None]
  - SINUSITIS [None]
  - ARTHRITIS [None]
